FAERS Safety Report 8461792-8 (Version None)
Quarter: 2012Q2

REPORT INFORMATION
  Report Type: 
  Country: None (occurrence: None)
  Receive Date: 20120625
  Receipt Date: 20120616
  Transmission Date: 20120825
  Serious: Yes (Hospitalization)
  Sender: FDA-Public Use
  Company Number: US-BAYER-2011-082389

PATIENT
  Age: 26 Year
  Sex: Female
  Weight: 47.166 kg

DRUGS (2)
  1. YAZ [Suspect]
     Indication: PREMENSTRUAL SYNDROME
     Dosage: UNK
     Dates: start: 20010101, end: 20060101
  2. YASMIN [Suspect]
     Indication: PREMENSTRUAL SYNDROME
     Dosage: UNK
     Dates: start: 20010101, end: 20060101

REACTIONS (15)
  - PANCREATITIS CHRONIC [None]
  - PSEUDOCYST [None]
  - REFUSAL OF TREATMENT BY PATIENT [None]
  - MALABSORPTION [None]
  - PREGNANCY [None]
  - PANCREATIC INJURY [None]
  - PAIN [None]
  - HAEMATEMESIS [None]
  - INJURY [None]
  - BILE DUCT STONE [None]
  - DYSPNOEA [None]
  - DEVICE OCCLUSION [None]
  - GALLBLADDER INJURY [None]
  - SUPRAVENTRICULAR TACHYCARDIA [None]
  - URINARY TRACT INFECTION [None]
